FAERS Safety Report 4675538-2 (Version None)
Quarter: 2005Q2

REPORT INFORMATION
  Report Type: 
  Country: None (occurrence: None)
  Receive Date: 20050527
  Receipt Date: 20050406
  Transmission Date: 20051028
  Serious: Yes (Other)
  Sender: FDA-Public Use
  Company Number: US-BRISTOL-MYERS SQUIBB COMPANY-12925145

PATIENT
  Age: 14 Year
  Sex: Male

DRUGS (3)
  1. ABILIFY [Suspect]
  2. DEPAKOTE ER [Concomitant]
  3. AUGMENTIN '125' [Concomitant]
     Indication: SINUSITIS

REACTIONS (1)
  - EXTRAPYRAMIDAL DISORDER [None]
